FAERS Safety Report 24659548 (Version 2)
Quarter: 2025Q1

REPORT INFORMATION
  Report Type: Spontaneous
  Country: US (occurrence: US)
  Receive Date: 20241125
  Receipt Date: 20250314
  Transmission Date: 20250409
  Serious: Yes (Hospitalization, Other)
  Sender: VERTEX
  Company Number: US-VERTEX PHARMACEUTICALS-2024-018129

PATIENT

DRUGS (2)
  1. TRIKAFTA [Suspect]
     Active Substance: ELEXACAFTOR\IVACAFTOR\TEZACAFTOR
     Indication: Cystic fibrosis
     Route: 048
  2. TRIKAFTA [Suspect]
     Active Substance: ELEXACAFTOR\IVACAFTOR\TEZACAFTOR
     Route: 048

REACTIONS (19)
  - Pseudomonas infection [Unknown]
  - Aspergillus test positive [Recovered/Resolved]
  - Syncope [Unknown]
  - Infective pulmonary exacerbation of cystic fibrosis [Unknown]
  - Angular cheilitis [Unknown]
  - Candida infection [Recovered/Resolved]
  - Pain in extremity [Unknown]
  - Dry skin [Unknown]
  - Alopecia [Unknown]
  - Balanitis candida [Recovered/Resolved]
  - Vision blurred [Recovered/Resolved]
  - Asthenia [Recovered/Resolved]
  - Fungal test positive [Recovered/Resolved]
  - Taste disorder [Recovered/Resolved]
  - Oropharyngeal pain [Recovered/Resolved]
  - Confusional state [Recovered/Resolved]
  - Anxiety [Recovered/Resolved]
  - Dizziness [Recovered/Resolved]
  - Headache [Recovered/Resolved]
